FAERS Safety Report 9704080 (Version 5)
Quarter: 2014Q1

REPORT INFORMATION
  Report Type: Spontaneous
  Country: IT (occurrence: IT)
  Receive Date: 20131122
  Receipt Date: 20140116
  Transmission Date: 20141002
  Serious: Yes (Life-Threatening, Hospitalization)
  Sender: FDA-Public Use
  Company Number: IT-PFIZER INC-2013330935

PATIENT
  Age: 66 Year
  Sex: Male

DRUGS (3)
  1. RAMIPRIL [Suspect]
     Indication: HYPERTENSION
     Dosage: 5 MG, DAILY
     Route: 048
     Dates: start: 20131001
  2. CITALOPRAM [Suspect]
     Dosage: 10 GTT, DAILY
     Route: 048
     Dates: start: 20131001
  3. TOLEP [Suspect]
     Indication: EPILEPSY
     Dosage: 600 MG, DAILY
     Route: 048
     Dates: start: 20101001, end: 20131003

REACTIONS (2)
  - Bradycardia [Recovering/Resolving]
  - Cardiac arrest [Recovering/Resolving]
